FAERS Safety Report 10265772 (Version 1)
Quarter: 2014Q2

REPORT INFORMATION
  Report Type: Report from Study
  Country: FR (occurrence: FR)
  Receive Date: 20140627
  Receipt Date: 20140627
  Transmission Date: 20141212
  Serious: Yes (Life-Threatening, Hospitalization)
  Sender: FDA-Public Use
  Company Number: FR-BRISTOL-MYERS SQUIBB COMPANY-21087457

PATIENT
  Age: 49 Year
  Sex: Male
  Weight: 68 kg

DRUGS (3)
  1. BARACLUDE [Suspect]
     Indication: HEPATITIS B VIRUS TEST
     Dates: start: 20130628
  2. ATARAX [Concomitant]
     Indication: ANXIETY
  3. DUPHALAC [Concomitant]
     Indication: HEPATIC ENCEPHALOPATHY
     Dates: start: 2013

REACTIONS (1)
  - Cerebral haemorrhage [Unknown]
